FAERS Safety Report 19004045 (Version 1)
Quarter: 2021Q1

REPORT INFORMATION
  Report Type: Report from Study
  Country: US (occurrence: US)
  Receive Date: 20210313
  Receipt Date: 20210313
  Transmission Date: 20210420
  Serious: No
  Sender: FDA-Public Use
  Company Number: NVSC2021US053506

PATIENT

DRUGS (1)
  1. PIQRAY [Suspect]
     Active Substance: ALPELISIB
     Indication: PRODUCT USED FOR UNKNOWN INDICATION
     Dosage: UNK
     Route: 048

REACTIONS (6)
  - Fatigue [Unknown]
  - Faeces soft [Unknown]
  - Pleural effusion [Unknown]
  - Abdominal pain upper [Unknown]
  - Dry mouth [Unknown]
  - Gait disturbance [Unknown]
